FAERS Safety Report 6243063-3 (Version None)
Quarter: 2009Q2

REPORT INFORMATION
  Report Type: 
  Country: None (occurrence: None)
  Receive Date: 20090617
  Receipt Date: 20080501
  Transmission Date: 20091009
  Serious: No
  Sender: FDA-Public Use
  Company Number: 275049

PATIENT
  Age: 72 Year
  Sex: Female

DRUGS (4)
  1. LEVEMIR [Suspect]
     Indication: INSULIN-REQUIRING TYPE 2 DIABETES MELLITUS
     Dosage: SUBCUTANEOUS
     Route: 058
  2. PRILOSEC [Concomitant]
  3. ALPRAZOLAM [Concomitant]
  4. SERTRALINE [Concomitant]

REACTIONS (3)
  - FEELING COLD [None]
  - NAUSEA [None]
  - TREMOR [None]
